FAERS Safety Report 8283691-7 (Version None)
Quarter: 2012Q2

REPORT INFORMATION
  Report Type: 
  Country: None (occurrence: None)
  Receive Date: 20120413
  Receipt Date: 20120406
  Transmission Date: 20120825
  Serious: Yes (Hospitalization, Other)
  Sender: FDA-Public Use
  Company Number: US-US-EMD SERONO, INC.-7107201

PATIENT
  Sex: Female

DRUGS (3)
  1. REBIF [Suspect]
     Indication: PRODUCT USED FOR UNKNOWN INDICATION
     Route: 058
     Dates: start: 20101027
  2. GABAPENTIN [Concomitant]
     Indication: PAIN
  3. INSULIN [Concomitant]
     Indication: DIABETES MELLITUS INADEQUATE CONTROL
     Dosage: TWO TO THREE TIMES DAILY

REACTIONS (9)
  - MYOCARDIAL ISCHAEMIA [None]
  - INJECTION SITE ERYTHEMA [None]
  - FAECAL INCONTINENCE [None]
  - INJECTION SITE HAEMATOMA [None]
  - PAIN IN EXTREMITY [None]
  - HYPERSOMNIA [None]
  - INJECTION SITE PAIN [None]
  - CHRONIC OBSTRUCTIVE PULMONARY DISEASE [None]
  - INJECTION SITE PRURITUS [None]
